FAERS Safety Report 12926696 (Version 3)
Quarter: 2016Q4

REPORT INFORMATION
  Report Type: Spontaneous
  Country: JP (occurrence: JP)
  Receive Date: 20161108
  Receipt Date: 20161201
  Transmission Date: 20170207
  Serious: Yes (Hospitalization, Other)
  Sender: FDA-Public Use
  Company Number: JP-GILEAD-2016-0241364

PATIENT
  Age: 72 Year
  Sex: Male

DRUGS (8)
  1. ACINON                             /00867001/ [Concomitant]
     Indication: PNEUMOCONIOSIS
     Dosage: 300 MG, UNK
     Route: 048
  2. AZULENE-GLUTAMINE [Concomitant]
     Indication: PNEUMOCONIOSIS
     Dosage: 1 MG, UNK
     Route: 048
  3. MUCOSOLVAN L [Concomitant]
     Active Substance: AMBROXOL HYDROCHLORIDE
     Indication: PNEUMOCONIOSIS
     Dosage: 45 MG, UNK
     Route: 048
  4. ULTIBRO [Concomitant]
     Active Substance: GLYCOPYRRONIUM\INDACATEROL
     Indication: PNEUMOCONIOSIS
     Dosage: 14 DF, UNK
     Route: 055
  5. THEO-DUR [Concomitant]
     Active Substance: THEOPHYLLINE ANHYDROUS
     Indication: PNEUMOCONIOSIS
     Dosage: 400 MG, UNK
     Route: 048
  6. HARVONI [Suspect]
     Active Substance: LEDIPASVIR\SOFOSBUVIR
     Indication: CHRONIC HEPATITIS C
     Dosage: 1 DF, QD
     Route: 048
     Dates: start: 20161012
  7. LOXOPROFEN [Concomitant]
     Active Substance: LOXOPROFEN
     Indication: PNEUMOCONIOSIS
     Dosage: 120 MG, UNK
     Route: 048
  8. RISUMIC [Concomitant]
     Active Substance: AMEZINIUM METILSULFATE
     Indication: PNEUMOCONIOSIS
     Dosage: 20 MG, UNK
     Route: 048

REACTIONS (1)
  - Pneumoconiosis [Not Recovered/Not Resolved]

NARRATIVE: CASE EVENT DATE: 20161102
